FAERS Safety Report 9302635 (Version 1)
Quarter: 2013Q2

REPORT INFORMATION
  Report Type: Spontaneous
  Country: JP (occurrence: JP)
  Receive Date: 20130522
  Receipt Date: 20130522
  Transmission Date: 20140414
  Serious: Yes (Hospitalization)
  Sender: FDA-Public Use
  Company Number: JP-MERCK-1305JPN012037

PATIENT
  Age: 84 Year
  Sex: Female

DRUGS (9)
  1. BONALON [Suspect]
     Dosage: 35 MG, QW
     Route: 048
     Dates: start: 200209, end: 201004
  2. BONOTEO [Suspect]
     Indication: OSTEOPOROSIS
     Dosage: DAILY DOSE: 1 MG
     Route: 048
     Dates: start: 201005, end: 201104
  3. ONEALFA [Concomitant]
     Indication: OSTEOPOROSIS
     Dosage: 1 MICROGRAM, QD
     Route: 048
     Dates: start: 200206, end: 201004
  4. ITOPRIDE HYDROCHLORIDE [Concomitant]
     Indication: GASTRITIS
     Route: 048
  5. ITOPRIDE HYDROCHLORIDE [Concomitant]
     Indication: CONSTIPATION
  6. ECABET SODIUM [Concomitant]
     Indication: GASTRITIS
     Route: 048
  7. ECABET SODIUM [Concomitant]
     Indication: CONSTIPATION
  8. DAI-KENCHU-TO [Concomitant]
     Indication: GASTRITIS
     Route: 048
  9. DAI-KENCHU-TO [Concomitant]
     Indication: CONSTIPATION

REACTIONS (1)
  - Femur fracture [Recovered/Resolved]
